FAERS Safety Report 14226360 (Version 2)
Quarter: 2018Q1

REPORT INFORMATION
  Report Type: Report from Study
  Country: CA (occurrence: CA)
  Receive Date: 20171127
  Receipt Date: 20180102
  Transmission Date: 20180508
  Serious: Yes (Death)
  Sender: FDA-Public Use
  Company Number: CA-TOLMAR, INC.-2017CA016190

PATIENT

DRUGS (1)
  1. ELIGARD [Suspect]
     Active Substance: LEUPROLIDE ACETATE
     Indication: PROSTATE CANCER
     Dosage: 30 MG, EVERY 16 WEEKS
     Route: 058
     Dates: start: 20161229, end: 20170810

REACTIONS (3)
  - Myocardial infarction [Fatal]
  - Prostatic specific antigen abnormal [Unknown]
  - Disease progression [Fatal]
